FAERS Safety Report 4367261-9 (Version None)
Quarter: 2004Q2

REPORT INFORMATION
  Report Type: 
  Country: None (occurrence: None)
  Receive Date: 20040524
  Receipt Date: 20040512
  Transmission Date: 20050107
  Serious: Yes (Other)
  Sender: FDA-Public Use
  Company Number: 8006140

PATIENT
  Age: 58 Year
  Sex: Female

DRUGS (14)
  1. KEPPRA [Suspect]
     Indication: EPILEPSY
     Dosage: 3000 MG PO
     Route: 048
     Dates: start: 20030901
  2. MEDROL [Suspect]
     Indication: PAIN IN EXTREMITY
     Dates: start: 20040416, end: 20040401
  3. CALCIUM [Concomitant]
  4. VITAMIN D [Concomitant]
  5. FOLATE [Concomitant]
  6. FOSAMAX [Concomitant]
  7. PROZAC [Concomitant]
  8. ZYRTEC [Concomitant]
  9. ACIPHEX [Concomitant]
  10. MOBIC [Concomitant]
  11. DIOVAN [Concomitant]
  12. LAMICTAL [Concomitant]
  13. REQUIP [Concomitant]
  14. CRESTOR [Concomitant]

REACTIONS (3)
  - ANAEMIA [None]
  - PAIN IN EXTREMITY [None]
  - THROMBOCYTOPENIA [None]
